FAERS Safety Report 11093189 (Version 1)
Quarter: 2015Q2

REPORT INFORMATION
  Report Type: Spontaneous
  Country: US (occurrence: None)
  Receive Date: 20150428
  Receipt Date: 20150428
  Transmission Date: 20150821
  Serious: Yes (Disabling, Other)
  Sender: FDA-Public Use
  Company Number: PHEH2014US006348

PATIENT
  Age: 50 Year
  Sex: Female

DRUGS (3)
  1. LOTREL [Suspect]
     Active Substance: AMLODIPINE BESYLATE\BENAZEPRIL HYDROCHLORIDE
  2. AMLODIPIN BESYLATE AND BENAZEPRIL HYDROCHLORIDE (AMLODIPINE BESILATE, BENAZEPRIL HYDROCHLORIDE [Suspect]
     Active Substance: AMLODIPINE BESYLATE\BENAZEPRIL HYDROCHLORIDE
     Indication: HYPERTENSION
     Dosage: 5 MG AMLO/20MG BENA MG, UNK, ORAL
     Route: 048
     Dates: start: 20140122, end: 20140220
  3. WARFARIN [Concomitant]
     Active Substance: WARFARIN

REACTIONS (6)
  - Blood pressure inadequately controlled [None]
  - Blood pressure increased [None]
  - Malaise [None]
  - Drug hypersensitivity [None]
  - Headache [None]
  - Eye pain [None]

NARRATIVE: CASE EVENT DATE: 20140122
